FAERS Safety Report 10158142 (Version 1)
Quarter: 2014Q2

REPORT INFORMATION
  Report Type: Spontaneous
  Country: JP (occurrence: JP)
  Receive Date: 20140507
  Receipt Date: 20140507
  Transmission Date: 20141212
  Serious: Yes (Hospitalization)
  Sender: FDA-Public Use
  Company Number: JP-JNJFOC-20140416463

PATIENT
  Age: 60 Year
  Sex: Male

DRUGS (12)
  1. PARACETAMOL [Suspect]
     Indication: ARTHRALGIA
     Route: 065
  2. PARACETAMOL [Suspect]
     Indication: LETHARGY
     Route: 065
  3. PARACETAMOL [Suspect]
     Indication: PYREXIA
     Route: 065
  4. DICLOFENAC [Suspect]
     Indication: RASH
     Route: 065
  5. DICLOFENAC [Suspect]
     Indication: ARTHRALGIA
     Route: 065
  6. ASPIRIN [Suspect]
     Indication: ARTHRALGIA
     Route: 065
  7. ASPIRIN [Suspect]
     Indication: LETHARGY
     Route: 065
  8. ASPIRIN [Suspect]
     Indication: PYREXIA
     Route: 065
  9. LEVOFLOXACIN [Suspect]
     Indication: RASH
     Route: 065
  10. LEVOFLOXACIN [Suspect]
     Indication: ARTHRALGIA
     Route: 065
  11. AMLODIPINE [Concomitant]
     Indication: HYPERTENSION
     Route: 065
  12. TELMISARTAN [Concomitant]
     Indication: HYPERTENSION
     Dosage: SINCE AGE 59
     Route: 065

REACTIONS (1)
  - Hypersensitivity vasculitis [Recovered/Resolved]
